FAERS Safety Report 10665170 (Version 1)
Quarter: 2014Q4

REPORT INFORMATION
  Report Type: Spontaneous
  Country: US (occurrence: US)
  Receive Date: 20141219
  Receipt Date: 20141219
  Transmission Date: 20150529
  Serious: Yes (Other)
  Sender: FDA-Public Use
  Company Number: PHHY2014US164127

PATIENT
  Age: 24 Year
  Sex: Female

DRUGS (2)
  1. BUPIVACAINE [Suspect]
     Active Substance: BUPIVACAINE
     Indication: NERVE BLOCK
     Dosage: 4.5 ML, UNK
     Route: 065
  2. TRIAMCINOLONE [Suspect]
     Active Substance: TRIAMCINOLONE
     Indication: NERVE BLOCK
     Dosage: 0.5 ML, UNK
     Route: 065

REACTIONS (4)
  - Paraesthesia [Unknown]
  - Facial paresis [Recovered/Resolved]
  - Facial asymmetry [Unknown]
  - VIIth nerve paralysis [Recovered/Resolved]
